FAERS Safety Report 4521626-0 (Version None)
Quarter: 2004Q4

REPORT INFORMATION
  Report Type: 
  Country: None (occurrence: None)
  Receive Date: 20041208
  Receipt Date: 20041208
  Transmission Date: 20050328
  Serious: Yes (Other)
  Sender: FDA-Public Use
  Company Number: None

PATIENT
  Age: 38 Year
  Sex: Male
  Weight: 104.3273 kg

DRUGS (1)
  1. AVELOX [Suspect]
     Indication: APPENDICECTOMY
     Dates: start: 20040714, end: 20040715

REACTIONS (4)
  - DIZZINESS [None]
  - INCISION SITE COMPLICATION [None]
  - RASH MACULO-PAPULAR [None]
  - RASH PRURITIC [None]
